FAERS Safety Report 8295653 (Version 2)
Quarter: 2012Q4

REPORT INFORMATION
  Report Type: 
  Country: US (occurrence: US)
  Receive Date: 20111216
  Receipt Date: 20121218
  Transmission Date: 20130627
  Serious: No
  Sender: FDA-Public Use
  Company Number: US-BRISTOL-MYERS SQUIBB COMPANY-15948078

PATIENT
  Age: 56 Year
  Sex: Male

DRUGS (5)
  1. ABILIFY [Suspect]
     Dosage: Started 2mg PO QD 2 weeks ago increased the dose to 5mg PO QD.
     Route: 048
     Dates: start: 201107, end: 20110731
  2. ZOLOFT [Concomitant]
  3. ATIVAN [Concomitant]
     Dosage: PRN
  4. AMBIEN CR [Concomitant]
  5. TRAZODONE HCL [Concomitant]
     Dosage: 1DF= 50-200mg PRN.

REACTIONS (1)
  - Oedema peripheral [Unknown]
